FAERS Safety Report 9205877 (Version 1)
Quarter: 2013Q1

REPORT INFORMATION
  Report Type: Spontaneous
  Country: US (occurrence: None)
  Receive Date: 20120709
  Receipt Date: 20120709
  Transmission Date: 20140127
  Serious: Yes (Disabling)
  Sender: FDA-Public Use
  Company Number: PHEH2011US011782

PATIENT
  Age: 60 Year
  Sex: Female
  Weight: 81 kg

DRUGS (8)
  1. GLEEVEC [Suspect]
     Indication: OVARIAN CANCER
     Route: 048
     Dates: start: 20100528
  2. GLEEVEC [Suspect]
     Route: 048
  3. SKELAXIN (METAXALONE) [Concomitant]
  4. PREDNISONE (PREDNISONE) [Concomitant]
  5. OXYCODONE (OXYCODONE) [Concomitant]
  6. OMEPRAZOLE (OMEPRAZOLE) [Concomitant]
  7. LANSOPRAZOLE (LANSOPRAZOLE) [Concomitant]
  8. MELOXICAM (MELOXICAM) [Concomitant]

REACTIONS (7)
  - Neuropathy peripheral [None]
  - Pain [None]
  - Deafness [None]
  - Rash pruritic [None]
  - Dizziness [None]
  - Blister [None]
  - Hypoaesthesia [None]
